FAERS Safety Report 6277526-1 (Version None)
Quarter: 2009Q3

REPORT INFORMATION
  Report Type: 
  Country: None (occurrence: None)
  Receive Date: 20090722
  Receipt Date: 20090528
  Transmission Date: 20100115
  Serious: Yes (Death, Other)
  Sender: FDA-Public Use
  Company Number: US-PFIZER INC-2009220411

PATIENT
  Age: 43 Year
  Sex: Female
  Weight: 79.365 kg

DRUGS (4)
  1. ALPRAZOLAM [Suspect]
     Dosage: UNK
  2. ZOLPIDEM [Concomitant]
  3. ZIPRASIDONE HYDROCHLORIDE [Concomitant]
  4. CITALOPRAM [Concomitant]

REACTIONS (14)
  - ABNORMAL BEHAVIOUR [None]
  - BLOOD PRESSURE INCREASED [None]
  - BODY TEMPERATURE INCREASED [None]
  - CARDIOMYOPATHY [None]
  - CONVERSION DISORDER [None]
  - CYANOSIS [None]
  - DISORIENTATION [None]
  - DRUG WITHDRAWAL SYNDROME [None]
  - HALLUCINATION [None]
  - HEART RATE INCREASED [None]
  - INSOMNIA [None]
  - MENTAL STATUS CHANGES [None]
  - RESPIRATORY ARREST [None]
  - TREMOR [None]
